FAERS Safety Report 17313391 (Version 1)
Quarter: 2020Q1

REPORT INFORMATION
  Report Type: Spontaneous
  Country: US (occurrence: US)
  Receive Date: 20200124
  Receipt Date: 20200124
  Transmission Date: 20200409
  Serious: Yes (Other)
  Sender: FDA-Public Use
  Company Number: US-AUROBINDO-AUR-APL-2020-003157

PATIENT
  Age: 64 Year
  Sex: Male

DRUGS (1)
  1. DEXAMETHASONE. [Suspect]
     Active Substance: DEXAMETHASONE
     Indication: ANALGESIC THERAPY
     Dosage: UNK UNK, DAILY
     Route: 065

REACTIONS (10)
  - Intentional product use issue [Unknown]
  - Blood pressure decreased [Unknown]
  - Lethargy [Unknown]
  - Back pain [Unknown]
  - Nocardiosis [Unknown]
  - Cachexia [Unknown]
  - Breath sounds abnormal [Unknown]
  - Infectious pleural effusion [Unknown]
  - Dyspnoea [Unknown]
  - Egobronchophony [Unknown]
